FAERS Safety Report 17174303 (Version 2)
Quarter: 2019Q4

REPORT INFORMATION
  Report Type: Spontaneous
  Country: US (occurrence: US)
  Receive Date: 20191219
  Receipt Date: 20191223
  Transmission Date: 20200122
  Serious: No
  Sender: FDA-Public Use
  Company Number: US-PFIZER INC-2018083375

PATIENT
  Age: 67 Year
  Sex: Male
  Weight: 88.45 kg

DRUGS (2)
  1. CAVERJECT [Suspect]
     Active Substance: ALPROSTADIL
     Dosage: UNK
  2. CAVERJECT [Suspect]
     Active Substance: ALPROSTADIL
     Indication: ERECTILE DYSFUNCTION
     Dosage: 20 UG, UNK

REACTIONS (5)
  - Dysuria [Unknown]
  - Penile curvature [Unknown]
  - Drug ineffective [Unknown]
  - Penile swelling [Unknown]
  - Injection site pain [Unknown]
